FAERS Safety Report 19212713 (Version 1)
Quarter: 2021Q2

REPORT INFORMATION
  Report Type: Spontaneous
  Country: US (occurrence: US)
  Receive Date: 20210504
  Receipt Date: 20210504
  Transmission Date: 20210717
  Serious: Yes (Other)
  Sender: FDA-Public Use
  Company Number: US-BEH-2021131258

PATIENT
  Age: 59 Year
  Sex: Female

DRUGS (1)
  1. HAEGARDA [Suspect]
     Active Substance: HUMAN C1-ESTERASE INHIBITOR
     Dosage: 7000 INTERNATIONAL UNIT
     Route: 058
     Dates: start: 2018

REACTIONS (2)
  - COVID-19 [Unknown]
  - Post-acute COVID-19 syndrome [Unknown]

NARRATIVE: CASE EVENT DATE: 202101
